FAERS Safety Report 10160367 (Version 1)
Quarter: 2014Q2

REPORT INFORMATION
  Report Type: Spontaneous
  Country: CH (occurrence: CH)
  Receive Date: 20140508
  Receipt Date: 20140508
  Transmission Date: 20141212
  Serious: Yes (Life-Threatening)
  Sender: FDA-Public Use
  Company Number: CH-GLAXOSMITHKLINE-B0991457A

PATIENT
  Age: 17 Year
  Sex: Female

DRUGS (6)
  1. ONDANSETRON [Suspect]
     Indication: PROPHYLAXIS OF NAUSEA AND VOMITING
     Route: 065
     Dates: start: 20131217, end: 20131217
  2. DISOPRIVAN [Concomitant]
     Indication: ANAESTHESIA
     Dates: start: 20131217, end: 20131217
  3. REMIFENTANIL [Concomitant]
     Indication: ANAESTHESIA
     Dates: start: 20131217, end: 20131217
  4. FENTANYL [Concomitant]
     Indication: ANAESTHESIA
     Dates: start: 20131217, end: 20131217
  5. EPHEDRIN [Concomitant]
     Indication: ANAESTHESIA
  6. PARACETAMOL [Concomitant]
     Indication: POSTOPERATIVE ANALGESIA
     Dates: start: 20131217, end: 20131217

REACTIONS (5)
  - Anaphylactic reaction [Recovered/Resolved]
  - Urticaria [Recovered/Resolved]
  - Dyspnoea [Recovered/Resolved]
  - Drug hypersensitivity [Not Recovered/Not Resolved]
  - Drug screen positive [Recovered/Resolved]
